FAERS Safety Report 22393773 (Version 2)
Quarter: 2023Q2

REPORT INFORMATION
  Report Type: Spontaneous
  Country: US (occurrence: US)
  Receive Date: 20230601
  Receipt Date: 20230605
  Transmission Date: 20230722
  Serious: No
  Sender: FDA-Public Use
  Company Number: US-SA-SAC20230601000201

PATIENT
  Sex: Male
  Weight: 15.376 kg

DRUGS (1)
  1. DUPIXENT [Suspect]
     Active Substance: DUPILUMAB
     Indication: Dermatitis atopic
     Dosage: 200 MG, QOW
     Route: 058

REACTIONS (4)
  - Scratch [Unknown]
  - Skin haemorrhage [Unknown]
  - Product prescribing issue [Unknown]
  - Incorrect dose administered [Unknown]
